FAERS Safety Report 17653049 (Version 6)
Quarter: 2021Q2

REPORT INFORMATION
  Report Type: Report from Study
  Country: DE (occurrence: DE)
  Receive Date: 20200409
  Receipt Date: 20210528
  Transmission Date: 20210716
  Serious: Yes (Hospitalization, Disabling, Other)
  Sender: FDA-Public Use
  Company Number: NVSC2020DE095876

PATIENT
  Sex: Female

DRUGS (3)
  1. LETROZOLE. [Suspect]
     Active Substance: LETROZOLE
     Indication: BREAST CANCER METASTATIC
     Dosage: 2.5 MG, QD
     Route: 048
     Dates: start: 20180119
  2. KISQALI [Suspect]
     Active Substance: RIBOCICLIB
     Dosage: 600 MG, (21 DAYS INTAKE, 7 DAYS PAUSE)
     Route: 048
     Dates: start: 20190122, end: 20200525
  3. KISQALI [Suspect]
     Active Substance: RIBOCICLIB
     Indication: BREAST CANCER METASTATIC
     Dosage: 600 MG (21 DAYS INTAKE, 7 DAYS PAUSE)
     Route: 048
     Dates: start: 20180119, end: 20181231

REACTIONS (6)
  - General physical health deterioration [Not Recovered/Not Resolved]
  - Intermittent claudication [Recovered/Resolved with Sequelae]
  - Cellulitis [Recovered/Resolved]
  - Skin ulcer [Recovered/Resolved]
  - Erysipelas [Recovered/Resolved]
  - Coronary artery disease [Recovered/Resolved with Sequelae]

NARRATIVE: CASE EVENT DATE: 20200127
